FAERS Safety Report 17631848 (Version 2)
Quarter: 2020Q2

REPORT INFORMATION
  Report Type: Spontaneous
  Country: IT (occurrence: IT)
  Receive Date: 20200406
  Receipt Date: 20200607
  Transmission Date: 20200713
  Serious: Yes (Other)
  Sender: FDA-Public Use
  Company Number: NVSC2020IT090927

PATIENT
  Age: 78 Year
  Sex: Female

DRUGS (2)
  1. ZOLEDRONIC ACID [Suspect]
     Active Substance: ZOLEDRONIC ACID
     Indication: RESORPTION BONE DECREASED
     Dosage: UNK
     Route: 042
     Dates: start: 201706
  2. NIVOLUMAB [Suspect]
     Active Substance: NIVOLUMAB
     Indication: PRODUCT USED FOR UNKNOWN INDICATION
     Dosage: UNK
     Route: 065
     Dates: start: 20170925

REACTIONS (4)
  - Hydronephrosis [Unknown]
  - Neurotoxicity [Unknown]
  - Lithiasis [Unknown]
  - Renal impairment [Unknown]

NARRATIVE: CASE EVENT DATE: 201806
